FAERS Safety Report 8216967-X (Version None)
Quarter: 2012Q1

REPORT INFORMATION
  Report Type: 
  Country: None (occurrence: None)
  Receive Date: 20120319
  Receipt Date: 20120305
  Transmission Date: 20120608
  Serious: Yes (Other)
  Sender: FDA-Public Use
  Company Number: AU-RANBAXY-2012RR-53739

PATIENT
  Age: 52 Year
  Sex: Female

DRUGS (13)
  1. PREMARIN [Suspect]
     Indication: PRODUCT USED FOR UNKNOWN INDICATION
     Dosage: 0.625 MG
     Route: 065
  2. SIMVASTATIN [Suspect]
     Indication: PRODUCT USED FOR UNKNOWN INDICATION
     Dosage: UNK
     Route: 065
  3. IRBESARTAN [Suspect]
     Indication: PRODUCT USED FOR UNKNOWN INDICATION
     Dosage: 300 MG/DAY
     Route: 065
  4. ATORVASTATIN [Suspect]
     Indication: PRODUCT USED FOR UNKNOWN INDICATION
     Dosage: UNK
     Route: 065
  5. LOVASTATIN [Suspect]
  6. METOCLOPRAMIDE [Suspect]
     Indication: PRODUCT USED FOR UNKNOWN INDICATION
     Dosage: UNK
     Route: 065
  7. PRAVASTATIN [Suspect]
     Indication: PRODUCT USED FOR UNKNOWN INDICATION
     Dosage: 40 MG, UNK
     Route: 065
  8. FLUOXETINE [Suspect]
     Indication: MENTAL DISORDER
     Dosage: UNK
     Route: 065
  9. DIAZEPAM [Suspect]
     Indication: MENTAL DISORDER
     Dosage: 5 MG
     Route: 065
  10. CITALOPRAM HYDROBROMIDE [Suspect]
     Indication: MENTAL DISORDER
     Dosage: UNK
     Route: 065
  11. VENLAFAXINE [Suspect]
     Indication: MENTAL DISORDER
     Dosage: 300 MG/DAY
     Route: 065
  12. TRAMADOL HCL [Suspect]
     Indication: MENTAL DISORDER
     Dosage: UNK
     Route: 065
  13. PAROXETINE HCL [Suspect]
     Indication: MENTAL DISORDER
     Dosage: 60 MG/DAY
     Route: 065

REACTIONS (2)
  - AKATHISIA [None]
  - PHYSICAL ASSAULT [None]
